FAERS Safety Report 18261091 (Version 1)
Quarter: 2020Q3

REPORT INFORMATION
  Report Type: Spontaneous
  Country: DK (occurrence: DK)
  Receive Date: 20200914
  Receipt Date: 20200914
  Transmission Date: 20201103
  Serious: Yes (Hospitalization)
  Sender: FDA-Public Use
  Company Number: DK-TEVA-2020-DK-1826167

PATIENT
  Age: 53 Year
  Sex: Female
  Weight: 60 kg

DRUGS (2)
  1. PREDNISOLON ^ACTAVIS^ [Suspect]
     Active Substance: PREDNISOLONE
     Indication: GIANT CELL ARTERITIS
     Dosage: DOSAGE: START 60 MG. 23JUL2020: 55 MG.
     Route: 048
     Dates: start: 20200711
  2. PREDNISOLON ^DAK^ [Suspect]
     Active Substance: PREDNISOLONE
     Indication: GIANT CELL ARTERITIS
     Dosage: DOSAGE: START 60 MG. 23JUL2020: 55
     Route: 048
     Dates: start: 20200711

REACTIONS (4)
  - Polyuria [Unknown]
  - Fatigue [Unknown]
  - Diabetes mellitus [Not Recovered/Not Resolved]
  - Thirst [Unknown]

NARRATIVE: CASE EVENT DATE: 202008
